FAERS Safety Report 6335316-5 (Version None)
Quarter: 2009Q3

REPORT INFORMATION
  Report Type: 
  Country: None (occurrence: None)
  Receive Date: 20090827
  Receipt Date: 19940412
  Transmission Date: 20100115
  Serious: Yes (Other)
  Sender: FDA-Public Use
  Company Number: 2009008820

PATIENT
  Sex: Female

DRUGS (4)
  1. MODAFINIL [Suspect]
     Indication: SLEEP DISORDER
     Dosage: ORAL
     Route: 048
  2. SOMSANITE (OXYBATE SODIUM) [Concomitant]
  3. L-TYROSIN (TYROSINE) [Concomitant]
  4. FLUIMUCIL (ACETYLCYSTEINE) [Concomitant]

REACTIONS (1)
  - GRAND MAL CONVULSION [None]
